FAERS Safety Report 22914045 (Version 2)
Quarter: 2023Q4

REPORT INFORMATION
  Report Type: Report from Study
  Country: US (occurrence: US)
  Receive Date: 20230906
  Receipt Date: 20231010
  Transmission Date: 20240110
  Serious: Yes (Other)
  Sender: FDA-Public Use
  Company Number: US-MYLANLABS-2023M1016666

PATIENT
  Sex: Male

DRUGS (1)
  1. LYRICA [Suspect]
     Active Substance: PREGABALIN
     Indication: Spinal stenosis
     Dosage: UNK
     Route: 065

REACTIONS (5)
  - Back pain [Unknown]
  - Drug dependence [Unknown]
  - Blood test abnormal [Unknown]
  - Prescription drug used without a prescription [Unknown]
  - Off label use [Unknown]
